FAERS Safety Report 19906439 (Version 2)
Quarter: 2021Q4

REPORT INFORMATION
  Report Type: Spontaneous
  Country: DE (occurrence: DE)
  Receive Date: 20211001
  Receipt Date: 20211007
  Transmission Date: 20220303
  Serious: Yes (Hospitalization)
  Sender: FDA-Public Use
  Company Number: DE-ADRED-06402-01

PATIENT
  Age: 88 Year
  Sex: Female

DRUGS (6)
  1. HYDROCHLOROTHIAZIDE [Suspect]
     Active Substance: HYDROCHLOROTHIAZIDE
     Indication: Product used for unknown indication
     Dosage: 25 MILLIGRAM, QD, 25 MG, QD (0.5-.25-0-0 DOSAGE FORM)
     Route: 048
  2. FLECAINIDE ACETATE [Suspect]
     Active Substance: FLECAINIDE ACETATE
     Indication: Product used for unknown indication
     Dosage: 100 MILLIGRAM, BID, 100 MG, 1-0-1-0, TABLETTEN
     Route: 048
  3. FLECAINIDE ACETATE [Suspect]
     Active Substance: FLECAINIDE ACETATE
     Dosage: 100 MILLIGRAM, QD, 100 MG, QD (1-0-1-0 DOSAGE FORM)
     Route: 048
  4. VERAPAMIL HYDROCHLORIDE [Suspect]
     Active Substance: VERAPAMIL HYDROCHLORIDE
     Indication: Product used for unknown indication
     Dosage: 80 MILLIGRAM, QD, (80 MG, QD (0.5-0.5-0.5-0 DOSAGE FORM)   )
     Route: 048
  5. MARCUMAR [Concomitant]
     Active Substance: PHENPROCOUMON
     Dosage: UNK, NACH INR, TABLETTEN
     Route: 048
  6. RAMIPRIL [Concomitant]
     Active Substance: RAMIPRIL
     Dosage: 5 MILLIGRAM, BID, 5 MG, 1-0-1-0, TABLETTEN
     Route: 048

REACTIONS (5)
  - General physical health deterioration [Unknown]
  - Renal impairment [Unknown]
  - Vertigo [Unknown]
  - Dyspnoea exertional [Unknown]
  - Electrolyte imbalance [Unknown]
